FAERS Safety Report 7190835-7 (Version None)
Quarter: 2010Q4

REPORT INFORMATION
  Report Type: 
  Country: None (occurrence: None)
  Receive Date: 20101223
  Receipt Date: 20101208
  Transmission Date: 20110411
  Serious: Yes (Hospitalization)
  Sender: FDA-Public Use
  Company Number: US-SANOFI-AVENTIS-2010SA076602

PATIENT
  Age: 85 Year
  Sex: Female

DRUGS (12)
  1. BLINDED THERAPY [Suspect]
     Indication: ATRIAL FIBRILLATION
     Route: 065
     Dates: start: 20101112
  2. SODIUM BICARBONATE [Suspect]
     Route: 065
     Dates: end: 20101125
  3. COREG [Concomitant]
  4. VYTORIN [Concomitant]
     Dates: start: 20070101
  5. AMLODIPINE [Concomitant]
     Dates: start: 20050301
  6. BENICAR HCT [Concomitant]
  7. LEVOTHYROXINE [Concomitant]
     Dates: start: 20050301
  8. LITHIUM [Concomitant]
     Dates: start: 20050701
  9. FISH OIL [Concomitant]
  10. ALLOPURINOL [Concomitant]
  11. NEXIUM [Concomitant]
     Dates: start: 20090401
  12. RESTORIL [Concomitant]
     Dates: start: 20050101

REACTIONS (2)
  - CARDIAC FAILURE CONGESTIVE [None]
  - URINARY TRACT INFECTION [None]
